FAERS Safety Report 5918634-1 (Version None)
Quarter: 2008Q4

REPORT INFORMATION
  Report Type: 
  Country: None (occurrence: None)
  Receive Date: 20081015
  Receipt Date: 20081007
  Transmission Date: 20090506
  Serious: Yes (Hospitalization)
  Sender: FDA-Public Use
  Company Number: CN-ABBOTT-08P-035-0480532-00

PATIENT
  Age: 30 Year
  Sex: Male

DRUGS (2)
  1. SEVOFLURANE [Suspect]
     Indication: GENERAL ANAESTHESIA
     Route: 055
     Dates: start: 20080901, end: 20080901
  2. SEVOFLURANE [Suspect]
     Route: 055
     Dates: start: 20081007, end: 20081007

REACTIONS (2)
  - BLOOD PRESSURE DECREASED [None]
  - GENERALISED ERYTHEMA [None]
